FAERS Safety Report 9994414 (Version 1)
Quarter: 2014Q1

REPORT INFORMATION
  Report Type: Spontaneous
  Country: US (occurrence: US)
  Receive Date: 20140311
  Receipt Date: 20140311
  Transmission Date: 20141002
  Serious: No
  Sender: FDA-Public Use
  Company Number: US-BIOGENIDEC-2014BI020313

PATIENT
  Sex: Female

DRUGS (1)
  1. AVONEX [Suspect]
     Indication: MULTIPLE SCLEROSIS
     Route: 030
     Dates: start: 20130418

REACTIONS (4)
  - Spinal osteoarthritis [Not Recovered/Not Resolved]
  - Migraine [Not Recovered/Not Resolved]
  - Neuralgia [Not Recovered/Not Resolved]
  - Memory impairment [Not Recovered/Not Resolved]
